FAERS Safety Report 4757856-2 (Version None)
Quarter: 2005Q3

REPORT INFORMATION
  Report Type: 
  Country: None (occurrence: None)
  Receive Date: 20050830
  Receipt Date: 20050823
  Transmission Date: 20060218
  Serious: Yes (Death)
  Sender: FDA-Public Use
  Company Number: DEWYE924123AUG05

PATIENT
  Age: 67 Year
  Sex: Female

DRUGS (4)
  1. VENLAFAXINE HCL [Suspect]
     Indication: MAJOR DEPRESSION
     Dosage: 150-200 MG; ORAL, REDUCED DOSE; ORAL
     Route: 048
  2. PERAZINE (PERAZINE DIMALEATE) [Concomitant]
  3. FUROSEMIDE [Concomitant]
  4. CAPTOPRIL [Concomitant]

REACTIONS (5)
  - AGITATION [None]
  - ATHETOSIS [None]
  - DELIRIUM [None]
  - DRUG WITHDRAWAL SYNDROME [None]
  - VENTRICULAR FIBRILLATION [None]
